FAERS Safety Report 11647835 (Version 1)
Quarter: 2015Q4

REPORT INFORMATION
  Report Type: Spontaneous
  Country: US (occurrence: US)
  Receive Date: 20151021
  Receipt Date: 20151021
  Transmission Date: 20160304
  Serious: No
  Sender: FDA-Public Use
  Company Number: US-TEVA-556621USA

PATIENT
  Sex: Female
  Weight: 61 kg

DRUGS (1)
  1. ESTRADIOL. [Suspect]
     Active Substance: ESTRADIOL
     Dosage: 2 MILLIGRAM DAILY;
     Dates: start: 20150215, end: 201504

REACTIONS (4)
  - Hot flush [Unknown]
  - Vertigo [Unknown]
  - Dizziness [Unknown]
  - Irritability [Unknown]

NARRATIVE: CASE EVENT DATE: 2015
